FAERS Safety Report 8958724 (Version 2)
Quarter: 2012Q4

REPORT INFORMATION
  Report Type: Report from Study
  Country: ES (occurrence: ES)
  Receive Date: 20121212
  Receipt Date: 20121213
  Transmission Date: 20130627
  Serious: Yes (Hospitalization)
  Sender: FDA-Public Use
  Company Number: ES-EISAI INC-E2007-00885-CLI-ES

PATIENT
  Age: 51 Year
  Sex: Female
  Weight: 70 kg

DRUGS (6)
  1. PERAMPANEL [Suspect]
     Indication: PARTIAL SEIZURES
     Dosage: Double Blind - Conversion Period
     Route: 048
     Dates: start: 20090915, end: 201001
  2. PERAMPANEL [Suspect]
     Route: 048
     Dates: start: 201001, end: 20120220
  3. OXCARBAMAZEPINE [Concomitant]
     Indication: EPILEPSY
     Route: 048
     Dates: start: 20080129
  4. OXCARBAMAZEPINE [Concomitant]
     Route: 048
     Dates: start: 20080129
  5. LEVETIRACETAM [Concomitant]
     Indication: EPILEPSY
     Route: 048
     Dates: start: 20080129
  6. PROPANOLOL [Concomitant]
     Indication: CEPHALGIA
     Route: 048
     Dates: start: 20100815

REACTIONS (1)
  - Breast cancer [Recovered/Resolved]
